FAERS Safety Report 8595209-X (Version None)
Quarter: 2012Q3

REPORT INFORMATION
  Report Type: 
  Country: None (occurrence: None)
  Receive Date: 20120815
  Receipt Date: 20120807
  Transmission Date: 20120928
  Serious: Yes (Other)
  Sender: FDA-Public Use
  Company Number: US-SANOFI-AVENTIS-2012SA057126

PATIENT
  Age: 45 Year
  Sex: Male

DRUGS (2)
  1. APIDRA SOLOSTAR [Suspect]
     Route: 058
     Dates: start: 20100101
  2. SOLOSTAR [Suspect]
     Dates: start: 20100101

REACTIONS (3)
  - PAIN IN EXTREMITY [None]
  - MUSCLE TWITCHING [None]
  - BLOOD GLUCOSE DECREASED [None]
